FAERS Safety Report 8495571-2 (Version None)
Quarter: 2012Q3

REPORT INFORMATION
  Report Type: 
  Country: None (occurrence: None)
  Receive Date: 20120709
  Receipt Date: 20120629
  Transmission Date: 20120928
  Serious: Yes (Other)
  Sender: FDA-Public Use
  Company Number: AR-ROCHE-1071361

PATIENT
  Sex: Female

DRUGS (1)
  1. LUCENTIS [Suspect]
     Indication: RETINAL DISORDER
     Route: 050
     Dates: start: 20110101

REACTIONS (9)
  - EYELID MARGIN CRUSTING [None]
  - VISUAL IMPAIRMENT [None]
  - DRUG INEFFECTIVE [None]
  - JOINT DISLOCATION [None]
  - SYNCOPE [None]
  - DIZZINESS [None]
  - VISUAL ACUITY REDUCED [None]
  - FALL [None]
  - CONDITION AGGRAVATED [None]
